FAERS Safety Report 21163472 (Version 3)
Quarter: 2022Q3

REPORT INFORMATION
  Report Type: Spontaneous
  Country: NL (occurrence: NL)
  Receive Date: 20220802
  Receipt Date: 20220819
  Transmission Date: 20221026
  Serious: Yes (Hospitalization, Other)
  Sender: FDA-Public Use
  Company Number: NL-009507513-2208NLD001394

PATIENT
  Sex: Female

DRUGS (2)
  1. KEYTRUDA [Suspect]
     Active Substance: PEMBROLIZUMAB
     Indication: Lung neoplasm malignant
     Dosage: UNK, Q3W
     Dates: start: 201911
  2. KEYTRUDA [Suspect]
     Active Substance: PEMBROLIZUMAB
     Dosage: UNK, EVERY 6 WEEKS
     Dates: end: 202111

REACTIONS (23)
  - Gastrointestinal inflammation [Unknown]
  - Procedural pain [Unknown]
  - Autoimmune disorder [Unknown]
  - Nephrostomy [Unknown]
  - Pneumonia [Unknown]
  - Campylobacter gastroenteritis [Recovered/Resolved]
  - Aphthous ulcer [Unknown]
  - Mucosal disorder [Unknown]
  - Rhinorrhoea [Unknown]
  - Lacrimation increased [Unknown]
  - Hypersomnia [Unknown]
  - Ill-defined disorder [Unknown]
  - Eating disorder [Unknown]
  - Inflammation [Unknown]
  - Tinnitus [Unknown]
  - Ageusia [Unknown]
  - Disturbance in attention [Unknown]
  - Pain [Unknown]
  - Malaise [Unknown]
  - Face oedema [Unknown]
  - Erythema [Unknown]
  - Adverse event [Unknown]
  - Toxicity to various agents [Unknown]
